FAERS Safety Report 11283065 (Version 1)
Quarter: 2015Q3

REPORT INFORMATION
  Report Type: Spontaneous
  Country: US (occurrence: None)
  Receive Date: 20150717
  Receipt Date: 20150717
  Transmission Date: 20151125
  Serious: No
  Sender: FDA-Public Use
  Company Number: None

PATIENT
  Age: 32 Year
  Sex: Female
  Weight: 68.2 kg

DRUGS (1)
  1. ARIPIPRAZOLE. [Suspect]
     Active Substance: ARIPIPRAZOLE
     Dosage: 2MG 1 ORAL TABLET
     Route: 048
     Dates: start: 201505, end: 201507

REACTIONS (3)
  - Product substitution issue [None]
  - Anxiety [None]
  - Somnolence [None]

NARRATIVE: CASE EVENT DATE: 20150701
